FAERS Safety Report 25390049 (Version 1)
Quarter: 2025Q2

REPORT INFORMATION
  Report Type: Spontaneous
  Country: US (occurrence: None)
  Receive Date: 20250602
  Receipt Date: 20250602
  Transmission Date: 20250717
  Serious: Yes (Hospitalization)
  Sender: FDA-CTU
  Company Number: None

PATIENT
  Age: 67 Year
  Sex: Male
  Weight: 110 kg

DRUGS (2)
  1. WARFARIN SODIUM [Suspect]
     Active Substance: WARFARIN SODIUM
     Indication: Atrial fibrillation
     Dates: start: 20200922
  2. CLOPIDOGREL BISULFATE [Suspect]
     Active Substance: CLOPIDOGREL BISULFATE
     Dosage: FREQUENCY : DAILY;?
     Route: 048
     Dates: start: 20230216

REACTIONS (4)
  - Haematoma muscle [None]
  - Haemoglobin decreased [None]
  - International normalised ratio increased [None]
  - Haemorrhage [None]

NARRATIVE: CASE EVENT DATE: 20250216
